FAERS Safety Report 8033122-7 (Version None)
Quarter: 2012Q1

REPORT INFORMATION
  Report Type: 
  Country: None (occurrence: None)
  Receive Date: 20120110
  Receipt Date: 20120110
  Transmission Date: 20120608
  Serious: Yes (Hospitalization, Other)
  Sender: FDA-Public Use
  Company Number: None

PATIENT
  Age: 69 Year
  Sex: Male
  Weight: 63.7 kg

DRUGS (21)
  1. DILTIAZEM HCL [Concomitant]
     Route: 048
  2. MAGNESIUM HYDROXIDE TAB [Concomitant]
  3. APAP/HYDROCODONE 500/7.5MG [Concomitant]
     Route: 048
  4. PRADAXA [Suspect]
     Indication: ATRIAL FIBRILLATION
     Dosage: 150MG
     Route: 048
     Dates: start: 20111212, end: 20111230
  5. CEFTRIAXONE [Concomitant]
     Route: 042
  6. SYMBICORT 160/4.5MCG [Concomitant]
     Route: 048
  7. CELEXA [Concomitant]
     Route: 048
  8. MALOX SUSPENSION [Concomitant]
     Route: 048
  9. ASPIRIN EC 8 [Concomitant]
     Route: 048
  10. CALCIUM/VITAMIN D [Concomitant]
  11. NICOTINE [Concomitant]
     Route: 061
  12. MAGNESIUM CITRATE [Concomitant]
  13. ACETAMINOPHEN [Concomitant]
     Route: 048
  14. AZITHROMYCIN [Concomitant]
     Route: 048
  15. AMIODARONE HCL [Concomitant]
  16. CELEXA [Concomitant]
     Route: 048
  17. ALBUTEROL NEBULIZED [Concomitant]
     Route: 048
  18. IPRATROPIUM NEBULIZED [Concomitant]
     Route: 048
  19. ALPRAZOLAM [Concomitant]
     Route: 048
  20. BISACODYL SUPPOSITORY [Concomitant]
     Route: 054
  21. PRADAXA [Concomitant]
     Route: 048

REACTIONS (7)
  - MOUTH HAEMORRHAGE [None]
  - RESPIRATORY FAILURE [None]
  - SMALL INTESTINAL HAEMORRHAGE [None]
  - UNRESPONSIVE TO STIMULI [None]
  - BLOOD PRESSURE DECREASED [None]
  - GASTRITIS [None]
  - GASTRIC HAEMORRHAGE [None]
